FAERS Safety Report 14832769 (Version 1)
Quarter: 2018Q2

REPORT INFORMATION
  Report Type: Spontaneous
  Country: US (occurrence: US)
  Receive Date: 20180501
  Receipt Date: 20180501
  Transmission Date: 20180711
  Serious: No
  Sender: FDA-Public Use
  Company Number: US-GLAXOSMITHKLINE-US2018074036

PATIENT
  Sex: Female

DRUGS (14)
  1. TRELEGY ELLIPTA [Suspect]
     Active Substance: FLUTICASONE FUROATE\UMECLIDINIUM BROMIDE\VILANTEROL TRIFENATATE
     Dosage: 100MCG/62.5MCG/25MCG
  2. ASPIRIN. [Concomitant]
     Active Substance: ASPIRIN
  3. XYZAL [Concomitant]
     Active Substance: LEVOCETIRIZINE DIHYDROCHLORIDE
  4. AMLODIPINE [Concomitant]
     Active Substance: AMLODIPINE BESYLATE
  5. ATORVASTATIN [Concomitant]
     Active Substance: ATORVASTATIN
  6. CLONIDINE. [Concomitant]
     Active Substance: CLONIDINE
  7. NUCALA [Concomitant]
     Active Substance: MEPOLIZUMAB
  8. TOPROL XL [Concomitant]
     Active Substance: METOPROLOL SUCCINATE
  9. RANITIDINE. [Concomitant]
     Active Substance: RANITIDINE
  10. ZYFLO [Concomitant]
     Active Substance: ZILEUTON
  11. TRIAMTERENE. [Concomitant]
     Active Substance: TRIAMTERENE
  12. METFORMIN [Concomitant]
     Active Substance: METFORMIN HYDROCHLORIDE
  13. TRELEGY ELLIPTA [Suspect]
     Active Substance: FLUTICASONE FUROATE\UMECLIDINIUM BROMIDE\VILANTEROL TRIFENATATE
     Indication: ASTHMA
     Dosage: 1 PUFF(S), QD
     Route: 055
     Dates: start: 20180409
  14. ALLOPURINOL. [Concomitant]
     Active Substance: ALLOPURINOL

REACTIONS (4)
  - Feeling abnormal [Unknown]
  - Arthralgia [Unknown]
  - Pain [Unknown]
  - Pain in extremity [Unknown]
